FAERS Safety Report 8391374-8 (Version None)
Quarter: 2012Q2

REPORT INFORMATION
  Report Type: 
  Country: None (occurrence: None)
  Receive Date: 20120521
  Receipt Date: 20120508
  Transmission Date: 20120825
  Serious: Yes (Other)
  Sender: FDA-Public Use
  Company Number: PL-1191954

PATIENT
  Age: 67 Year
  Sex: Female
  Weight: 65 kg

DRUGS (1)
  1. TOBRADEX [Suspect]
     Indication: CONJUNCTIVITIS
     Dosage: (BID OPHTHALMIC)
     Route: 047
     Dates: start: 20111125, end: 20111202

REACTIONS (1)
  - MOUTH HAEMORRHAGE [None]
